FAERS Safety Report 4531861-3 (Version None)
Quarter: 2004Q4

REPORT INFORMATION
  Report Type: 
  Country: None (occurrence: None)
  Receive Date: 20041220
  Receipt Date: 20041209
  Transmission Date: 20050328
  Serious: Yes (Death, Hospitalization)
  Sender: FDA-Public Use
  Company Number: FR-JNJFOC-20041202518

PATIENT
  Age: 56 Year
  Sex: Male

DRUGS (3)
  1. DURAGESIC [Suspect]
     Indication: CANCER PAIN
     Route: 062
  2. ACTISKENAN [Suspect]
     Indication: DRUG USE FOR UNKNOWN INDICATION
     Route: 049
  3. IRESSA [Suspect]
     Indication: DRUG USE FOR UNKNOWN INDICATION
     Route: 049

REACTIONS (6)
  - ALVEOLITIS ALLERGIC [None]
  - DEATH [None]
  - HYPERCAPNIA [None]
  - HYPERVENTILATION [None]
  - HYPOXIA [None]
  - INTERSTITIAL LUNG DISEASE [None]
